FAERS Safety Report 16304588 (Version 1)
Quarter: 2019Q2

REPORT INFORMATION
  Report Type: Spontaneous
  Country: US (occurrence: US)
  Receive Date: 20190405
  Receipt Date: 20190405
  Transmission Date: 20190711
  Serious: Yes (Hospitalization)
  Sender: FDA-Public Use
  Company Number: None

PATIENT
  Sex: Male
  Weight: 30.6 kg

DRUGS (7)
  1. METHOTREXATE. [Suspect]
     Active Substance: METHOTREXATE
     Dates: end: 20190328
  2. CYTARABINE. [Suspect]
     Active Substance: CYTARABINE
     Dates: end: 20190328
  3. HYDROCORTISONE. [Suspect]
     Active Substance: HYDROCORTISONE
     Dates: end: 20190328
  4. VINCRISTINE [Suspect]
     Active Substance: VINCRISTINE
     Dates: end: 20190328
  5. DEXAMETHASONE. [Suspect]
     Active Substance: DEXAMETHASONE
     Dates: end: 20190401
  6. MITOXANTRONE HYDROCHLORIDE. [Suspect]
     Active Substance: MITOXANTRONE HYDROCHLORIDE
     Dates: end: 20190315
  7. ONCASPAR [Suspect]
     Active Substance: PEGASPARGASE
     Dates: end: 20190328

REACTIONS (4)
  - Febrile neutropenia [None]
  - Gastrointestinal disorder [None]
  - Abdominal pain [None]
  - Haematochezia [None]

NARRATIVE: CASE EVENT DATE: 20190403
